FAERS Safety Report 24958423 (Version 1)
Quarter: 2025Q1

REPORT INFORMATION
  Report Type: Spontaneous
  Country: KR (occurrence: KR)
  Receive Date: 20250212
  Receipt Date: 20250212
  Transmission Date: 20250409
  Serious: Yes (Hospitalization, Other)
  Sender: RANBAXY
  Company Number: KR-SUN PHARMACEUTICAL INDUSTRIES LTD-2025R1-492931

PATIENT
  Age: 52 Year
  Sex: Female

DRUGS (3)
  1. EMPAGLIFLOZIN [Suspect]
     Active Substance: EMPAGLIFLOZIN
     Indication: Diabetes mellitus
     Dosage: 25 MILLIGRAM, QD
     Route: 065
  2. GLIMEPIRIDE [Suspect]
     Active Substance: GLIMEPIRIDE
     Indication: Diabetes mellitus
     Dosage: 2 MILLIGRAM, QD
     Route: 065
  3. METFORMIN [Suspect]
     Active Substance: METFORMIN HYDROCHLORIDE
     Indication: Diabetes mellitus
     Dosage: 1000 MILLIGRAM, BID
     Route: 065

REACTIONS (4)
  - Cerebral infarction [Unknown]
  - Condition aggravated [Unknown]
  - Diabetic ketoacidosis [Recovering/Resolving]
  - Neurologic neglect syndrome [Unknown]
